FAERS Safety Report 16352315 (Version 1)
Quarter: 2019Q2

REPORT INFORMATION
  Report Type: Spontaneous
  Country: GB (occurrence: GB)
  Receive Date: 20190524
  Receipt Date: 20190524
  Transmission Date: 20190711
  Serious: Yes (Other)
  Sender: FDA-Public Use
  Company Number: GB-GILEAD-2019-0409738

PATIENT
  Age: 89 Year
  Sex: Male

DRUGS (6)
  1. RANOLAZINE. [Suspect]
     Active Substance: RANOLAZINE
     Indication: ANGINA UNSTABLE
     Dosage: 3 DOSAGE FORM, QD
     Route: 048
     Dates: start: 20190418
  2. AMOXICILLIN. [Concomitant]
     Active Substance: AMOXICILLIN
  3. NITROFURANTOIN. [Concomitant]
     Active Substance: NITROFURANTOIN
  4. SERTRALINE [Concomitant]
     Active Substance: SERTRALINE HYDROCHLORIDE
  5. ALLOPURINOL. [Concomitant]
     Active Substance: ALLOPURINOL
  6. ADCAL [CALCIUM CARBONATE;COLECALCIFEROL] [Concomitant]

REACTIONS (2)
  - Product use in unapproved indication [Unknown]
  - Contusion [Unknown]

NARRATIVE: CASE EVENT DATE: 20190418
